FAERS Safety Report 5270409-5 (Version None)
Quarter: 2007Q1

REPORT INFORMATION
  Report Type: 
  Country: None (occurrence: None)
  Receive Date: 20070320
  Receipt Date: 20070309
  Transmission Date: 20070707
  Serious: Yes (Other)
  Sender: FDA-Public Use
  Company Number: FR-PFIZER INC-2007018428

PATIENT
  Sex: Female

DRUGS (2)
  1. TAHOR [Suspect]
     Dates: start: 20070201, end: 20070301
  2. AMLODIPINE [Concomitant]

REACTIONS (3)
  - BLOOD PRESSURE INCREASED [None]
  - LARYNGEAL OEDEMA [None]
  - SWELLING FACE [None]
